FAERS Safety Report 8556585-7 (Version None)
Quarter: 2012Q3

REPORT INFORMATION
  Report Type: 
  Country: None (occurrence: None)
  Receive Date: 20120719
  Receipt Date: 20120704
  Transmission Date: 20120928
  Serious: Yes (Life-Threatening, Hospitalization)
  Sender: FDA-Public Use
  Company Number: MPS1-1000691

PATIENT
  Age: 5 Year
  Sex: Male
  Weight: 20.6 kg

DRUGS (13)
  1. SINGULAIR [Concomitant]
  2. ALDURAZYME [Suspect]
     Indication: MUCOPOLYSACCHARIDOSIS I
     Dosage: 0.81 MG/KG, QW, INTRAVENOUS
     Route: 042
     Dates: start: 20090201
  3. CORTICOSTEROID NOS (CORTICOSTEROID NOS) [Concomitant]
  4. AEROLIN (SBUTAMOL SULFATE) [Concomitant]
  5. BRONCHODILATORS NOS [Concomitant]
  6. HYDROXYZINE [Concomitant]
  7. SERETIDE (FLUTICASONE PROPIONATE) [Concomitant]
  8. PREDNISONE TAB [Concomitant]
  9. SPIRONOLACTONE [Concomitant]
  10. PURAN T4 (LEVOTHYROXINE SODIUM) [Concomitant]
  11. ACETAMINOPHEN [Concomitant]
  12. MOTILIUM [Concomitant]
  13. FUROSEMIDE [Concomitant]

REACTIONS (7)
  - INCREASED BRONCHIAL SECRETION [None]
  - PALLOR [None]
  - ASTHMA [None]
  - CYANOSIS [None]
  - SEPSIS [None]
  - HYPERHIDROSIS [None]
  - DYSPNOEA [None]
